FAERS Safety Report 6084055-7 (Version None)
Quarter: 2009Q1

REPORT INFORMATION
  Report Type: 
  Country: None (occurrence: None)
  Receive Date: 20090204
  Receipt Date: 20081024
  Transmission Date: 20090719
  Serious: Yes (Hospitalization)
  Sender: FDA-Public Use
  Company Number: 279106

PATIENT
  Sex: Male
  Weight: 78.2 kg

DRUGS (1)
  1. NOVOLOG [Suspect]
     Indication: TYPE 1 DIABETES MELLITUS
     Dosage: SUBCUTAN.-PUMP
     Route: 058
     Dates: start: 20070101

REACTIONS (1)
  - BLOOD GLUCOSE INCREASED [None]
